FAERS Safety Report 8913975 (Version 1)
Quarter: 2012Q4

REPORT INFORMATION
  Report Type: 
  Country: US (occurrence: US)
  Receive Date: 20121119
  Receipt Date: 20121119
  Transmission Date: 20130627
  Serious: Yes (Hospitalization, Other)
  Sender: FDA-Public Use
  Company Number: US-AMGEN-USASP2012072740

PATIENT
  Age: 68 Year
  Sex: Male
  Weight: 96.15 kg

DRUGS (3)
  1. PROCRIT [Suspect]
     Indication: ANAEMIA
     Dosage: UNK
     Route: 058
     Dates: start: 200910
  2. VELCADE [Concomitant]
     Dosage: UNK
     Dates: start: 2009
  3. NIFEDIPINE [Concomitant]
     Indication: BLOOD PRESSURE
     Dosage: 90 mg, qd
     Route: 048

REACTIONS (10)
  - Hospitalisation [Recovered/Resolved]
  - Humerus fracture [Not Recovered/Not Resolved]
  - Bone neoplasm [Recovered/Resolved]
  - Renal failure [Unknown]
  - Malaise [Not Recovered/Not Resolved]
  - Feeling cold [Not Recovered/Not Resolved]
  - Red blood cell count decreased [Not Recovered/Not Resolved]
  - Blood pressure increased [Recovered/Resolved]
  - General physical health deterioration [Not Recovered/Not Resolved]
  - Pyrexia [Not Recovered/Not Resolved]
